FAERS Safety Report 20327108 (Version 2)
Quarter: 2022Q2

REPORT INFORMATION
  Report Type: Spontaneous
  Country: US (occurrence: US)
  Receive Date: 20220112
  Receipt Date: 20220408
  Transmission Date: 20220721
  Serious: No
  Sender: FDA-Public Use
  Company Number: US-PFIZER INC-202101858082

PATIENT
  Age: 48 Year
  Sex: Male

DRUGS (17)
  1. IBRANCE [Suspect]
     Active Substance: PALBOCICLIB
     Dosage: 125 MG, CYCLIC [125MG TABLETS FOR 2 WEEKS, WAS OFF 2 WEEKS]
  2. IBRANCE [Suspect]
     Active Substance: PALBOCICLIB
     Dosage: 100 MG, CYCLIC [100 MG ORALLY DAILY 1 THROUGH 21 OF 28]
     Route: 048
     Dates: start: 20211108
  3. IBRANCE [Suspect]
     Active Substance: PALBOCICLIB
     Dosage: 75 MG
  4. AMLODIPINE BESYLATE [Concomitant]
     Active Substance: AMLODIPINE BESYLATE
     Dosage: UNK
  5. ANASTROZOLE [Concomitant]
     Active Substance: ANASTROZOLE
     Dosage: UNK
  6. ASPIRIN [Concomitant]
     Active Substance: ASPIRIN
     Dosage: UNK
  7. CLOPIDOGREL [Concomitant]
     Active Substance: CLOPIDOGREL BISULFATE
     Dosage: UNK
  8. FENOFIBRATE [Concomitant]
     Active Substance: FENOFIBRATE
     Dosage: UNK
  9. HYDROCHLOROTHIAZIDE [Concomitant]
     Active Substance: HYDROCHLOROTHIAZIDE
     Dosage: UNK
  10. ACETAMINOPHEN\HYDROCODONE [Concomitant]
     Active Substance: ACETAMINOPHEN\HYDROCODONE
     Dosage: UNK
  11. LISINOPRIL [Concomitant]
     Active Substance: LISINOPRIL
     Dosage: UNK
  12. LUPRON DEPOT [Concomitant]
     Active Substance: LEUPROLIDE ACETATE
     Dosage: UNK
  13. MAGNESIUM SULFATE [Concomitant]
     Active Substance: MAGNESIUM SULFATE
     Dosage: UNK
  14. METFORMIN HYDROCHLORIDE [Concomitant]
     Active Substance: METFORMIN HYDROCHLORIDE
     Dosage: UNK
  15. OXCARBAZEPINE [Concomitant]
     Active Substance: OXCARBAZEPINE
     Dosage: UNK
  16. OXYCODONE HYDROCHLORIDE [Concomitant]
     Active Substance: OXYCODONE HYDROCHLORIDE
     Dosage: UNK
  17. ROSUVASTATIN CALCIUM [Concomitant]
     Active Substance: ROSUVASTATIN CALCIUM
     Dosage: UNK

REACTIONS (2)
  - Laboratory test abnormal [Unknown]
  - COVID-19 [Unknown]
